FAERS Safety Report 11100203 (Version 1)
Quarter: 2015Q2

REPORT INFORMATION
  Report Type: Spontaneous
  Country: US (occurrence: None)
  Receive Date: 20150507
  Receipt Date: 20150507
  Transmission Date: 20150821
  Serious: Yes (Other)
  Sender: FDA-Public Use
  Company Number: None

PATIENT
  Age: 64 Year
  Sex: Female
  Weight: 42.18 kg

DRUGS (10)
  1. VITAMIN B2 [Concomitant]
     Active Substance: RIBOFLAVIN
  2. SALAGEN [Concomitant]
     Active Substance: PILOCARPINE HYDROCHLORIDE
  3. DIAZPAM [Concomitant]
  4. ACYCLOVIR. [Concomitant]
     Active Substance: ACYCLOVIR
  5. PLAQUENIL [Concomitant]
     Active Substance: HYDROXYCHLOROQUINE SULFATE
  6. PERDIEM WITH STIMULANT [Concomitant]
  7. VITAMIN D [Concomitant]
     Active Substance: CHOLECALCIFEROL
  8. SYNTHROID [Concomitant]
     Active Substance: LEVOTHYROXINE SODIUM
  9. BENLYSTA [Suspect]
     Active Substance: BELIMUMAB
     Indication: SYSTEMIC LUPUS ERYTHEMATOSUS
     Route: 042
     Dates: start: 20130930, end: 20140227
  10. BLACK COHOSH [Concomitant]
     Active Substance: BLACK COHOSH

REACTIONS (2)
  - Quality of life decreased [None]
  - Migraine [None]

NARRATIVE: CASE EVENT DATE: 20140227
